FAERS Safety Report 24532809 (Version 9)
Quarter: 2025Q2

REPORT INFORMATION
  Report Type: Report from Study
  Country: US (occurrence: US)
  Receive Date: 20241022
  Receipt Date: 20250408
  Transmission Date: 20250716
  Serious: No
  Sender: SUNOVION
  Company Number: US-SUMITOMO PHARMA SWITZERLAND GMBH-2024SPA003963

PATIENT

DRUGS (2)
  1. ORGOVYX [Suspect]
     Active Substance: RELUGOLIX
     Indication: Prostate cancer
     Dosage: 360 MG, SINGLE
     Route: 048
     Dates: start: 20241001, end: 20241001
  2. ORGOVYX [Suspect]
     Active Substance: RELUGOLIX
     Dosage: 120 MG, QD
     Route: 048
     Dates: start: 20241002, end: 202502

REACTIONS (32)
  - Haematochezia [Unknown]
  - Gout [Unknown]
  - Oedema peripheral [Unknown]
  - Sinus disorder [Unknown]
  - Peripheral swelling [Unknown]
  - Muscular weakness [Unknown]
  - Aggression [Unknown]
  - Muscle strength abnormal [Unknown]
  - Hypoacusis [Unknown]
  - Sexual dysfunction [Unknown]
  - Dyspnoea exertional [Unknown]
  - Illness [Unknown]
  - Quality of life decreased [Unknown]
  - Decreased interest [Not Recovered/Not Resolved]
  - Anhedonia [Unknown]
  - Decreased activity [Unknown]
  - Feeling abnormal [Unknown]
  - Hypersomnia [Unknown]
  - Irritability [Unknown]
  - Dizziness [Unknown]
  - Back pain [Unknown]
  - Arthritis [Unknown]
  - Arthralgia [Unknown]
  - Myalgia [Unknown]
  - Hot flush [Unknown]
  - Hyperhidrosis [Unknown]
  - Fatigue [Not Recovered/Not Resolved]
  - Neck pain [Unknown]
  - Asthenia [Not Recovered/Not Resolved]
  - Headache [Unknown]
  - Depression [Unknown]
  - Drug ineffective [Unknown]
